FAERS Safety Report 6326561-3 (Version None)
Quarter: 2009Q3

REPORT INFORMATION
  Report Type: 
  Country: None (occurrence: None)
  Receive Date: 20090825
  Receipt Date: 20090813
  Transmission Date: 20100115
  Serious: Yes (Hospitalization, Disabling)
  Sender: FDA-Public Use
  Company Number: DK-BAYER-200928986GPV

PATIENT
  Age: 17 Year
  Sex: Female
  Weight: 60 kg

DRUGS (2)
  1. YASMIN [Suspect]
     Indication: MENSTRUATION IRREGULAR
     Dosage: TOTAL DAILY DOSE: 1 DF
     Route: 048
     Dates: start: 20080901, end: 20090430
  2. RISPERDAL [Interacting]
     Indication: PSYCHOTIC DISORDER
     Route: 048
     Dates: start: 20090422

REACTIONS (3)
  - HEADACHE [None]
  - HEMIPARESIS [None]
  - PSYCHOTIC DISORDER [None]
